FAERS Safety Report 5564791-9 (Version None)
Quarter: 2007Q4

REPORT INFORMATION
  Report Type: 
  Country: None (occurrence: None)
  Receive Date: 20071213
  Receipt Date: 20071213
  Transmission Date: 20080405
  Serious: Yes (Hospitalization)
  Sender: FDA-Public Use
  Company Number: None

PATIENT
  Age: 68 Year
  Sex: Male
  Weight: 100.1 kg

DRUGS (1)
  1. SEVOFLURANE [Suspect]
     Indication: INDUCTION AND MAINTENANCE OF ANAESTHESIA
     Dosage: INHAL
     Route: 055
     Dates: start: 20071130, end: 20071130

REACTIONS (5)
  - BRADYCARDIA [None]
  - ELECTROCARDIOGRAM CHANGE [None]
  - HYPERKALAEMIA [None]
  - POST PROCEDURAL COMPLICATION [None]
  - THERAPEUTIC RESPONSE DELAYED [None]
